FAERS Safety Report 19924554 (Version 1)
Quarter: 2021Q4

REPORT INFORMATION
  Report Type: Spontaneous
  Country: US (occurrence: US)
  Receive Date: 20211006
  Receipt Date: 20211006
  Transmission Date: 20220303
  Serious: No
  Sender: FDA-Public Use
  Company Number: US-PERRIGO-20US015441

PATIENT
  Age: 34 Year
  Sex: Male
  Weight: 84.81 kg

DRUGS (1)
  1. NICOTINE POLACRILEX [Suspect]
     Active Substance: NICOTINE
     Indication: Tobacco user
     Dosage: 4 MG, 4 TO 5 TIMES
     Route: 002
     Dates: start: 20201022, end: 20201022

REACTIONS (4)
  - Hot flush [Unknown]
  - Erythema [Unknown]
  - Heart rate increased [Unknown]
  - Off label use [Recovered/Resolved]

NARRATIVE: CASE EVENT DATE: 20201022
